FAERS Safety Report 11051800 (Version 2)
Quarter: 2015Q2

REPORT INFORMATION
  Report Type: Other
  Country: IT (occurrence: IT)
  Receive Date: 20150421
  Receipt Date: 20150427
  Transmission Date: 20150821
  Serious: Yes (Hospitalization)
  Sender: FDA-Public Use
  Company Number: IT-MYLANLABS-2015M1012501

PATIENT

DRUGS (8)
  1. CIPROFLOXACIN HYDROCHLORIDE. [Concomitant]
     Active Substance: CIPROFLOXACIN HYDROCHLORIDE
     Indication: MENINGITIS BACTERIAL
  2. OMEPRAZOLE. [Concomitant]
     Active Substance: OMEPRAZOLE
     Indication: DYSPEPSIA
     Dosage: 40 MG, UNK
     Route: 048
     Dates: start: 20150401
  3. MAALOX ANTACID [Concomitant]
     Active Substance: ALUMINUM HYDROXIDE\DIMETHICONE\MAGNESIUM HYDROXIDE
     Indication: DYSPEPSIA
     Dosage: 400 MG, UNK
     Route: 048
     Dates: start: 20150401, end: 20150407
  4. VANCOMYCIN HYDROCHLORIDE. [Suspect]
     Active Substance: VANCOMYCIN HYDROCHLORIDE
     Indication: ANTIBIOTIC PROPHYLAXIS
     Dosage: 1 G, QD
     Route: 042
     Dates: start: 20150314, end: 20150325
  5. VANCOMYCIN HYDROCHLORIDE. [Suspect]
     Active Substance: VANCOMYCIN HYDROCHLORIDE
     Indication: MENINGITIS BACTERIAL
     Dosage: 2 G, QD
     Dates: start: 20150326, end: 20150401
  6. CEFTRIAXONE SODIUM. [Concomitant]
     Active Substance: CEFTRIAXONE SODIUM
     Indication: ANTIBIOTIC PROPHYLAXIS
     Dosage: 4 MG, UNK
     Route: 030
     Dates: start: 20150314, end: 20150401
  7. CIPROFLOXACIN HYDROCHLORIDE. [Concomitant]
     Active Substance: CIPROFLOXACIN HYDROCHLORIDE
     Indication: ANTIBIOTIC PROPHYLAXIS
     Dosage: 1000 MG, UNK
     Route: 048
     Dates: start: 20150317, end: 20150401
  8. CEFTRIAXONE SODIUM. [Concomitant]
     Active Substance: CEFTRIAXONE SODIUM
     Indication: MENINGITIS BACTERIAL

REACTIONS (5)
  - Drug eruption [Unknown]
  - Urticaria [Recovered/Resolved with Sequelae]
  - Microlithiasis [Recovered/Resolved with Sequelae]
  - Pancreatic disorder [Unknown]
  - Drug hypersensitivity [Recovered/Resolved with Sequelae]

NARRATIVE: CASE EVENT DATE: 20150405
